FAERS Safety Report 9290251 (Version 1)
Quarter: 2013Q2

REPORT INFORMATION
  Report Type: Spontaneous
  Country: US (occurrence: None)
  Receive Date: 20130514
  Receipt Date: 20130514
  Transmission Date: 20140414
  Serious: Yes (Other)
  Sender: FDA-Public Use
  Company Number: None

PATIENT
  Age: 62 Year
  Sex: Female
  Weight: 72.58 kg

DRUGS (1)
  1. LIDOCAINE [Suspect]
     Indication: JOINT INJECTION
     Dosage: 5 ML ONCE INTRA-ARTICULAR
     Route: 014
     Dates: start: 20130419, end: 20130419

REACTIONS (3)
  - Flushing [None]
  - Injection site reaction [None]
  - Product quality issue [None]
